FAERS Safety Report 16170334 (Version 1)
Quarter: 2019Q2

REPORT INFORMATION
  Report Type: Spontaneous
  Country: ES (occurrence: ES)
  Receive Date: 20190408
  Receipt Date: 20190408
  Transmission Date: 20190711
  Serious: Yes (Hospitalization, Disabling)
  Sender: FDA-Public Use
  Company Number: ES-B.I. PHARMACEUTICALS,INC./RIDGEFIELD-2019-12-001131

PATIENT
  Age: 70 Year
  Sex: Male
  Weight: 57.2 kg

DRUGS (3)
  1. TOUJEO [Concomitant]
     Active Substance: INSULIN GLARGINE
     Indication: DIABETES WITH HYPEROSMOLARITY
     Dosage: 0 IU AT DINNER, 0 IU AT LUNCH, 20 IU AT BREAKFAST.
     Route: 058
     Dates: start: 20170328
  2. JANUVIA [Concomitant]
     Active Substance: SITAGLIPTIN PHOSPHATE
     Indication: DIABETES WITH HYPEROSMOLARITY
     Dosage: 1 TABLET EVERY DAY
     Route: 048
     Dates: start: 20170328
  3. SYNJARDY [Suspect]
     Active Substance: EMPAGLIFLOZIN\METFORMIN HYDROCHLORIDE
     Indication: TYPE 2 DIABETES MELLITUS
     Dosage: 1 TABLET EVERY 12 HOURS.  SYNJARDY 12,5MG/1000MG
     Route: 048
     Dates: start: 20180301

REACTIONS (3)
  - Toe amputation [Recovering/Resolving]
  - Localised infection [Recovering/Resolving]
  - Toe amputation [Recovering/Resolving]

NARRATIVE: CASE EVENT DATE: 20180716
